FAERS Safety Report 11568596 (Version 1)
Quarter: 2015Q3

REPORT INFORMATION
  Report Type: Spontaneous
  Country: US (occurrence: US)
  Receive Date: 20150916
  Receipt Date: 20150916
  Transmission Date: 20151125
  Serious: No
  Sender: FDA-Public Use
  Company Number: US-ELI_LILLY_AND_COMPANY-US200908004793

PATIENT
  Sex: Female

DRUGS (2)
  1. PRILOSEC [Concomitant]
     Active Substance: OMEPRAZOLE MAGNESIUM
  2. FORTEO [Suspect]
     Active Substance: TERIPARATIDE
     Dates: start: 200806

REACTIONS (6)
  - Decreased appetite [Unknown]
  - Malaise [Unknown]
  - Sleep disorder [Unknown]
  - Peripheral coldness [Unknown]
  - Dysphagia [Unknown]
  - Muscle spasms [Unknown]
